FAERS Safety Report 7460299-4 (Version None)
Quarter: 2011Q2

REPORT INFORMATION
  Report Type: 
  Country: None (occurrence: None)
  Receive Date: 20110505
  Receipt Date: 20110421
  Transmission Date: 20111010
  Serious: Yes (Death, Hospitalization)
  Sender: FDA-Public Use
  Company Number: NL-JNJFOC-20091203972

PATIENT
  Sex: Male
  Weight: 78.6 kg

DRUGS (5)
  1. VORICONAZOLE [Suspect]
     Indication: ASPERGILLOSIS
  2. REMICADE [Suspect]
     Indication: CROHN'S DISEASE
     Route: 042
  3. ESOMEPRAZOLE [Concomitant]
  4. POSACONAZOLE [Suspect]
     Indication: ASPERGILLOSIS
  5. BUDESONIDE [Concomitant]

REACTIONS (12)
  - LUNG ABSCESS [None]
  - PNEUMONIA [None]
  - HALLUCINATION [None]
  - RIB FRACTURE [None]
  - OEDEMA [None]
  - PSEUDOMONAS INFECTION [None]
  - HEPATIC FUNCTION ABNORMAL [None]
  - ASPERGILLOSIS [None]
  - HAEMOGLOBIN DECREASED [None]
  - BRONCHIOLITIS [None]
  - ESCHERICHIA INFECTION [None]
  - CROHN'S DISEASE [None]
